FAERS Safety Report 7622312-0 (Version None)
Quarter: 2011Q3

REPORT INFORMATION
  Report Type: 
  Country: None (occurrence: None)
  Receive Date: 20110711
  Receipt Date: 20110624
  Transmission Date: 20111222
  Serious: Yes (Hospitalization)
  Sender: FDA-Public Use
  Company Number: TCI2011A03703

PATIENT
  Age: 71 Year
  Sex: Male

DRUGS (7)
  1. ACTOS [Suspect]
     Indication: TYPE 2 DIABETES MELLITUS
     Dosage: 30 MG (30 MG,1 D) PER ORAL
     Route: 048
     Dates: start: 20080422, end: 20091026
  2. CALCIUM CHANNEL BLOCKERS [Concomitant]
  3. BIGUANIDES [Concomitant]
  4. ALPHA GLUCOSIDASE INHIBITORS [Concomitant]
  5. ANGIOTENSIN II ANTAGONISTS [Concomitant]
  6. SULFONAMIDES, UREA DERIVATIVES [Concomitant]
  7. ACE INHIBITOR NOS [Concomitant]

REACTIONS (7)
  - NEPHROGENIC ANAEMIA [None]
  - DIABETIC NEPHROPATHY [None]
  - CONDITION AGGRAVATED [None]
  - LABORATORY TEST ABNORMAL [None]
  - BLOOD CREATININE INCREASED [None]
  - LOSS OF CONSCIOUSNESS [None]
  - PNEUMONIA [None]
